FAERS Safety Report 24289116 (Version 1)
Quarter: 2024Q3

REPORT INFORMATION
  Report Type: Spontaneous
  Country: FR (occurrence: FR)
  Receive Date: 20240906
  Receipt Date: 20240906
  Transmission Date: 20241017
  Serious: Yes (Hospitalization, Other)
  Sender: BRISTOL MYERS SQUIBB
  Company Number: None

PATIENT
  Age: 74 Year
  Sex: Female
  Weight: 60 kg

DRUGS (7)
  1. NIVOLUMAB [Suspect]
     Active Substance: NIVOLUMAB
     Indication: Malignant melanoma
     Dosage: C1 IPI NIVO
     Route: 042
     Dates: start: 20240621, end: 20240621
  2. NIVOLUMAB [Suspect]
     Active Substance: NIVOLUMAB
     Dosage: C2 IPI NIVO
     Route: 042
     Dates: start: 20240716, end: 20240716
  3. IPILIMUMAB [Suspect]
     Active Substance: IPILIMUMAB
     Indication: Malignant melanoma
     Dosage: C1 IPI NIVO
     Route: 042
     Dates: start: 20240621, end: 20240621
  4. IPILIMUMAB [Suspect]
     Active Substance: IPILIMUMAB
     Dosage: C2 IPI NIVO
     Route: 042
     Dates: start: 20240716, end: 20240716
  5. APIXABAN [Suspect]
     Active Substance: APIXABAN
     Indication: Atrial fibrillation
     Dosage: 5 MG X 2/DAY
     Route: 048
     Dates: start: 20240709, end: 20240823
  6. KEPPRA [Suspect]
     Active Substance: LEVETIRACETAM
     Indication: Product used for unknown indication
     Dosage: 250 MG MORNING AND EVENING
     Route: 048
     Dates: start: 20240621, end: 20240725
  7. PROPYLTHIOURACIL [Suspect]
     Active Substance: PROPYLTHIOURACIL
     Indication: Hyperthyroidism
     Dosage: 150 MG MORNING, NOON AND NIGH
     Route: 048
     Dates: start: 20240709, end: 20240723

REACTIONS (1)
  - Drug reaction with eosinophilia and systemic symptoms [Recovering/Resolving]

NARRATIVE: CASE EVENT DATE: 20240718
